FAERS Safety Report 23592103 (Version 1)
Quarter: 2024Q1

REPORT INFORMATION
  Report Type: Spontaneous
  Country: DE (occurrence: DE)
  Receive Date: 20240304
  Receipt Date: 20240304
  Transmission Date: 20240410
  Serious: Yes (Hospitalization, Other)
  Sender: FDA-Public Use
  Company Number: DE-TEVA-2022-DE-2049567

PATIENT
  Age: 5 Decade
  Sex: Female

DRUGS (18)
  1. CELECOXIB [Suspect]
     Active Substance: CELECOXIB
     Dosage: 200.000MG
     Route: 065
     Dates: start: 20170918, end: 20181105
  2. CELECOXIB [Suspect]
     Active Substance: CELECOXIB
     Dosage: 200.000MG
     Route: 065
     Dates: start: 20191107, end: 20201215
  3. CELECOXIB [Suspect]
     Active Substance: CELECOXIB
     Indication: Axial spondyloarthritis
     Dosage: 800.000MG
     Route: 065
     Dates: start: 20190101, end: 20190501
  4. INFLECTRA [Suspect]
     Active Substance: INFLIXIMAB-DYYB
     Indication: Ankylosing spondylitis
     Dosage: 400.000MG
     Route: 065
     Dates: start: 20220807
  5. METHOTREXATE [Suspect]
     Active Substance: METHOTREXATE
     Indication: Ankylosing spondylitis
     Dosage: 10.000MG
     Route: 048
     Dates: start: 20120101
  6. METHOTREXATE [Suspect]
     Active Substance: METHOTREXATE
     Dosage: 5.000MG
     Route: 048
     Dates: start: 20120101, end: 20181115
  7. METHOTREXATE [Suspect]
     Active Substance: METHOTREXATE
     Dosage: 5.000MG
     Route: 048
     Dates: start: 20190404
  8. METHOTREXATE [Suspect]
     Active Substance: METHOTREXATE
     Route: 048
     Dates: start: 20210915
  9. NAPROXEN [Suspect]
     Active Substance: NAPROXEN
     Indication: Axial spondyloarthritis
     Dosage: 500.000MG QD
     Route: 065
     Dates: start: 20210608, end: 20220715
  10. INFLIXIMAB [Suspect]
     Active Substance: INFLIXIMAB
     Indication: Ankylosing spondylitis
     Dosage: 120.000MG BIW
     Route: 065
     Dates: start: 20211015, end: 20220710
  11. INFLIXIMAB [Suspect]
     Active Substance: INFLIXIMAB
     Dosage: 120.000MG BIW
     Route: 065
     Dates: start: 20210915, end: 20210930
  12. INFLIXIMAB [Suspect]
     Active Substance: INFLIXIMAB
     Indication: Axial spondyloarthritis
     Dosage: 5.000MG
     Route: 048
     Dates: start: 20120404
  13. INFLIXIMAB [Suspect]
     Active Substance: INFLIXIMAB
     Dosage: 5.000MG
     Route: 048
     Dates: start: 20120101, end: 20181105
  14. SIMPONI [Suspect]
     Active Substance: GOLIMUMAB
     Dosage: 100.000MG
     Route: 058
     Dates: start: 20210615, end: 20210815
  15. SIMPONI [Suspect]
     Active Substance: GOLIMUMAB
     Indication: Ankylosing spondylitis
     Dosage: 50.000MG
     Route: 058
     Dates: start: 20180226, end: 20191010
  16. SIMPONI [Suspect]
     Active Substance: GOLIMUMAB
     Indication: Axial spondyloarthritis
     Dosage: 50.000MG
     Route: 058
     Dates: start: 20200502, end: 20210515
  17. SIMPONI [Suspect]
     Active Substance: GOLIMUMAB
     Dosage: 50.000MG
     Route: 058
     Dates: start: 20191128
  18. ACEMETACIN [Concomitant]
     Active Substance: ACEMETACIN
     Indication: Product used for unknown indication
     Route: 065
     Dates: start: 20181105, end: 20181108

REACTIONS (18)
  - Postoperative adhesion [Recovered/Resolved]
  - Osteochondrosis [Recovered/Resolved]
  - Axial spondyloarthritis [Recovered/Resolved]
  - Residual urine volume increased [Recovered/Resolved]
  - Back pain [Recovered/Resolved]
  - Intervertebral disc protrusion [Recovered/Resolved]
  - Hypertonic bladder [Unknown]
  - Polyarthritis [Unknown]
  - Rotator cuff syndrome [Recovered/Resolved]
  - Multiple sclerosis [Unknown]
  - Ovarian cyst [Unknown]
  - Urinary tract infection [Unknown]
  - Functional gastrointestinal disorder [Unknown]
  - Rash [Unknown]
  - Gastritis [Unknown]
  - Laryngitis [Unknown]
  - Upper respiratory tract infection [Unknown]
  - Off label use [Unknown]

NARRATIVE: CASE EVENT DATE: 20190304
